FAERS Safety Report 9688828 (Version 1)
Quarter: 2013Q4

REPORT INFORMATION
  Report Type: Spontaneous
  Country: US (occurrence: US)
  Receive Date: 20131114
  Receipt Date: 20131114
  Transmission Date: 20140711
  Serious: Yes (Other)
  Sender: FDA-Public Use
  Company Number: US-AMGEN-USASP2013079222

PATIENT
  Age: 72 Year
  Sex: Female

DRUGS (2)
  1. PROLIA [Suspect]
     Indication: MYELOFIBROSIS
     Route: 065
  2. CINACALCET [Concomitant]

REACTIONS (2)
  - Hypophosphataemia [Not Recovered/Not Resolved]
  - Hypocalcaemia [Unknown]
